FAERS Safety Report 4812264-0 (Version None)
Quarter: 2005Q4

REPORT INFORMATION
  Report Type: 
  Country: None (occurrence: None)
  Receive Date: 20051028
  Receipt Date: 20040929
  Transmission Date: 20060501
  Serious: No
  Sender: FDA-Public Use
  Company Number: US-GLAXOSMITHKLINE-A0527773A

PATIENT
  Age: 68 Year
  Sex: Female

DRUGS (9)
  1. ADVAIR DISKUS 100/50 [Suspect]
     Indication: CHRONIC OBSTRUCTIVE PULMONARY DISEASE
     Dosage: 1PUFF TWICE PER DAY
     Route: 055
  2. ALBUTEROL [Concomitant]
  3. IPRATROPIUM BROMIDE [Concomitant]
  4. COMBIVENT [Concomitant]
  5. BEANO [Concomitant]
  6. NORVASC [Concomitant]
  7. TENORMIN [Concomitant]
  8. LEVOTHROID [Concomitant]
  9. XANAX [Concomitant]

REACTIONS (4)
  - GLOSSODYNIA [None]
  - TONGUE COATED [None]
  - TONGUE DISCOLOURATION [None]
  - TONGUE DISORDER [None]
